FAERS Safety Report 16014249 (Version 3)
Quarter: 2019Q2

REPORT INFORMATION
  Report Type: Spontaneous
  Country: BR (occurrence: BR)
  Receive Date: 20190227
  Receipt Date: 20190612
  Transmission Date: 20190711
  Serious: Yes (Hospitalization, Disabling, Other)
  Sender: FDA-Public Use
  Company Number: BR-BAUSCH-BL-2019-006033

PATIENT
  Sex: Female
  Weight: 40 kg

DRUGS (5)
  1. COLLAGENASE [Concomitant]
     Active Substance: COLLAGENASE CLOSTRIDIUM HISTOLYTICUM
     Indication: WOUND
     Dosage: IN USE
     Dates: start: 2019
  2. TERRAMICINA [Concomitant]
     Indication: WOUND
     Dates: start: 1999
  3. CALCIUM [Concomitant]
     Active Substance: CALCIUM
     Indication: VITAMIN SUPPLEMENTATION
  4. EFURIX [Suspect]
     Active Substance: FLUOROURACIL
     Indication: PROPHYLAXIS
     Dosage: APPLY FOR 2 DAYS ALWAYS WHEN WHITE CRUST IN HER SKIN WAS NOTICED
     Route: 061
     Dates: start: 1999
  5. CLOPIDOGREL BISULFATE. [Concomitant]
     Active Substance: CLOPIDOGREL BISULFATE
     Indication: PRODUCT USED FOR UNKNOWN INDICATION

REACTIONS (27)
  - Arterial occlusive disease [Unknown]
  - Sepsis [Unknown]
  - Glaucoma [Unknown]
  - Epistaxis [Recovered/Resolved]
  - Limb discomfort [Recovered/Resolved]
  - Pain [Not Recovered/Not Resolved]
  - Headache [Unknown]
  - Gait disturbance [Recovered/Resolved]
  - Cataract [Unknown]
  - Eating disorder [Unknown]
  - Syncope [Unknown]
  - Depression [Unknown]
  - Synovial cyst [Not Recovered/Not Resolved]
  - Eye haemorrhage [Unknown]
  - Dysuria [Unknown]
  - Skin papilloma [Not Recovered/Not Resolved]
  - Wound [Not Recovered/Not Resolved]
  - Urinary tract infection [Unknown]
  - Thyroid mass [Unknown]
  - Peripheral swelling [Recovered/Resolved]
  - Hypertension [Unknown]
  - Peripheral swelling [Unknown]
  - Pyrexia [Unknown]
  - Weight decreased [Unknown]
  - Diabetes mellitus [Unknown]
  - Blindness [Unknown]
  - Application site hypersensitivity [Unknown]

NARRATIVE: CASE EVENT DATE: 1999
